FAERS Safety Report 11453689 (Version 1)
Quarter: 2015Q3

REPORT INFORMATION
  Report Type: Spontaneous
  Country: US (occurrence: US)
  Receive Date: 20150831
  Receipt Date: 20150831
  Transmission Date: 20151125
  Serious: No
  Sender: FDA-Public Use
  Company Number: US-ELI_LILLY_AND_COMPANY-US201001000838

PATIENT
  Age: 80 Year
  Sex: Female

DRUGS (4)
  1. VITAMINS NOS [Concomitant]
     Active Substance: VITAMINS
  2. CYMBALTA [Suspect]
     Active Substance: DULOXETINE HYDROCHLORIDE
     Indication: NERVOUSNESS
     Dosage: 30 MG, DAILY (1/D)
     Route: 048
     Dates: start: 20100101
  3. MOTRIN [Concomitant]
     Active Substance: IBUPROFEN
     Indication: NERVOUSNESS
  4. PREVACID [Concomitant]
     Active Substance: LANSOPRAZOLE

REACTIONS (2)
  - Confusional state [Unknown]
  - Decreased activity [Unknown]

NARRATIVE: CASE EVENT DATE: 201001
